FAERS Safety Report 20958399 (Version 1)
Quarter: 2022Q2

REPORT INFORMATION
  Report Type: Spontaneous
  Country: IT (occurrence: IT)
  Receive Date: 20220614
  Receipt Date: 20220614
  Transmission Date: 20220721
  Serious: Yes (Other)
  Sender: FDA-Public Use
  Company Number: None

PATIENT
  Age: 56 Year
  Sex: Female

DRUGS (1)
  1. ETANERCEPT [Suspect]
     Active Substance: ETANERCEPT
     Indication: Psoriatic arthropathy
     Route: 042
     Dates: start: 20190503, end: 20220519

REACTIONS (5)
  - Erectile dysfunction [Unknown]
  - Joint lock [Unknown]
  - Drug ineffective [Unknown]
  - Product substitution [Unknown]
  - Product use issue [Unknown]

NARRATIVE: CASE EVENT DATE: 20220519
